FAERS Safety Report 21549367 (Version 2)
Quarter: 2022Q4

REPORT INFORMATION
  Report Type: Report from Study
  Country: BR (occurrence: BR)
  Receive Date: 20221103
  Receipt Date: 20221128
  Transmission Date: 20230113
  Serious: Yes (Other)
  Sender: FDA-Public Use
  Company Number: BR-JNJFOC-20221056850

PATIENT
  Age: 4 Decade
  Sex: Female
  Weight: 70 kg

DRUGS (2)
  1. REMICADE [Suspect]
     Active Substance: INFLIXIMAB
     Indication: Crohn^s disease
     Dosage: THERAPY START DATE AUG OR SEP AS PER REPORTER COMMENT
     Route: 041
     Dates: start: 20210826
  2. ISONIAZID [Concomitant]
     Active Substance: ISONIAZID

REACTIONS (4)
  - Interferon gamma release assay positive [Unknown]
  - Surgery [Unknown]
  - Anal fissure [Unknown]
  - Drug ineffective [Unknown]
